FAERS Safety Report 5138694-8 (Version None)
Quarter: 2006Q4

REPORT INFORMATION
  Report Type: 
  Country: None (occurrence: None)
  Receive Date: 20061030
  Receipt Date: 20061002
  Transmission Date: 20070319
  Serious: Yes (Hospitalization)
  Sender: FDA-Public Use
  Company Number: FR-ROCHE-465904

PATIENT
  Age: 72 Year
  Sex: Female
  Weight: 62 kg

DRUGS (17)
  1. ROCEPHIN [Suspect]
     Route: 065
     Dates: start: 20060810
  2. BACTRIM [Suspect]
     Route: 065
     Dates: start: 20060818, end: 20060831
  3. CELEBREX [Suspect]
     Indication: DRUG USE FOR UNKNOWN INDICATION
     Route: 048
     Dates: start: 20060731
  4. CIFLOX [Suspect]
     Route: 065
     Dates: start: 20060811
  5. ACTISKENAN [Concomitant]
     Route: 048
     Dates: start: 20060810
  6. DOLIPRANE [Concomitant]
     Route: 048
     Dates: start: 20060810, end: 20060831
  7. TAHOR [Concomitant]
  8. AVLOCARDYL [Concomitant]
  9. DEROXAT [Concomitant]
  10. FOSAMAX [Concomitant]
  11. FORLAX [Concomitant]
  12. OGAST [Concomitant]
  13. CETIRIZINE HCL [Concomitant]
  14. NOROXIN [Concomitant]
  15. DAKTARIN [Concomitant]
     Route: 002
  16. KETODERM [Concomitant]
  17. UNCLASSIFIED DRUG [Concomitant]
     Dosage: DRUG REPORTED AS ^GYNOPEVARYL^

REACTIONS (3)
  - ODYNOPHAGIA [None]
  - RASH MACULO-PAPULAR [None]
  - STEVENS-JOHNSON SYNDROME [None]
